FAERS Safety Report 8809787 (Version 5)
Quarter: 2013Q1

REPORT INFORMATION
  Report Type: Spontaneous
  Country: US (occurrence: US)
  Receive Date: 20120926
  Receipt Date: 20130211
  Transmission Date: 20140127
  Serious: Yes (Hospitalization)
  Sender: FDA-Public Use
  Company Number: US-GILEAD-2012-0061842

PATIENT
  Sex: Male

DRUGS (2)
  1. LETAIRIS [Suspect]
     Indication: COR PULMONALE CHRONIC
     Dosage: 10 MG, QD
     Route: 048
     Dates: start: 20110420
  2. REVATIO [Concomitant]

REACTIONS (5)
  - Unevaluable event [Unknown]
  - Dyspnoea [Unknown]
  - Fatigue [Unknown]
  - Dysphonia [Unknown]
  - Dyspnoea [Unknown]
